FAERS Safety Report 12954363 (Version 1)
Quarter: 2016Q4

REPORT INFORMATION
  Report Type: Spontaneous
  Country: US (occurrence: US)
  Receive Date: 20161118
  Receipt Date: 20161118
  Transmission Date: 20170207
  Serious: No
  Sender: FDA-Public Use
  Company Number: US-PFIZER INC-2016533658

PATIENT
  Sex: Female

DRUGS (1)
  1. DIAZEPAM. [Suspect]
     Active Substance: DIAZEPAM
     Indication: NECK PAIN
     Dosage: 2.5 MG, UNK (TAKES IT HALF A TABLET)

REACTIONS (1)
  - Drug ineffective [Not Recovered/Not Resolved]
